FAERS Safety Report 8548356-2 (Version None)
Quarter: 2012Q3

REPORT INFORMATION
  Report Type: 
  Country: None (occurrence: None)
  Receive Date: 20120730
  Receipt Date: 20120719
  Transmission Date: 20120928
  Serious: Yes (Hospitalization)
  Sender: FDA-Public Use
  Company Number: US-JNJFOC-20120607175

PATIENT
  Sex: Male

DRUGS (1)
  1. DURAGESIC-100 [Suspect]
     Indication: PRODUCT USED FOR UNKNOWN INDICATION
     Route: 062

REACTIONS (6)
  - FATIGUE [None]
  - MYOCARDIAL INFARCTION [None]
  - LIMB DISCOMFORT [None]
  - HEADACHE [None]
  - DRUG DOSE OMISSION [None]
  - DECREASED APPETITE [None]
